FAERS Safety Report 16719350 (Version 2)
Quarter: 2019Q3

REPORT INFORMATION
  Report Type: Report from Study
  Country: US (occurrence: US)
  Receive Date: 20190820
  Receipt Date: 20190823
  Transmission Date: 20191005
  Serious: Yes (Life-Threatening, Hospitalization, Disabling, Other)
  Sender: FDA-Public Use
  Company Number: PHEH2019US034424

PATIENT
  Age: 79 Year
  Sex: Female

DRUGS (7)
  1. BRILINTA [Concomitant]
     Active Substance: TICAGRELOR
     Indication: ISCHAEMIC CARDIOMYOPATHY
     Dosage: 90 MG, UNK
     Route: 048
  2. ENTRESTO [Suspect]
     Active Substance: SACUBITRIL\VALSARTAN
     Indication: ISCHAEMIC CARDIOMYOPATHY
     Dosage: 50 MG, MG (SACUBITRIL 24 MG, VALSARTAN 26 MG)
     Route: 048
  3. ENTRESTO [Suspect]
     Active Substance: SACUBITRIL\VALSARTAN
     Indication: CARDIAC FAILURE
  4. CRESTOR [Concomitant]
     Active Substance: ROSUVASTATIN CALCIUM
     Indication: CARDIAC FAILURE
  5. CRESTOR [Concomitant]
     Active Substance: ROSUVASTATIN CALCIUM
     Indication: ISCHAEMIC CARDIOMYOPATHY
     Dosage: 40 MG, UNK
     Route: 048
  6. ASA [Concomitant]
     Active Substance: ASPIRIN
     Indication: ISCHAEMIC CARDIOMYOPATHY
     Dosage: 81 MG, UNK
     Route: 048
  7. COREG [Concomitant]
     Active Substance: CARVEDILOL
     Indication: ISCHAEMIC CARDIOMYOPATHY
     Dosage: 3.125 MG, UNK
     Route: 048

REACTIONS (7)
  - Ischaemic cardiomyopathy [Recovered/Resolved]
  - Pulmonary oedema [Unknown]
  - Dyspnoea [Unknown]
  - Myocardial infarction [Unknown]
  - Chest discomfort [Unknown]
  - Oedema peripheral [Unknown]
  - Acute myocardial infarction [Unknown]

NARRATIVE: CASE EVENT DATE: 20180708
